FAERS Safety Report 5872421-1 (Version None)
Quarter: 2008Q3

REPORT INFORMATION
  Report Type: 
  Country: None (occurrence: None)
  Receive Date: 20080905
  Receipt Date: 20080827
  Transmission Date: 20090109
  Serious: Yes (Hospitalization)
  Sender: FDA-Public Use
  Company Number: PHHY2008US19601

PATIENT
  Sex: Male
  Weight: 102 kg

DRUGS (1)
  1. EXJADE [Suspect]
     Dosage: 2000 MG/DAY
     Route: 048
     Dates: start: 20080709

REACTIONS (3)
  - ABDOMINAL PAIN [None]
  - BLOOD BILIRUBIN INCREASED [None]
  - INFECTION [None]
